FAERS Safety Report 8455200-0 (Version None)
Quarter: 2012Q2

REPORT INFORMATION
  Report Type: 
  Country: None (occurrence: None)
  Receive Date: 20120621
  Receipt Date: 20120614
  Transmission Date: 20120825
  Serious: Yes (Hospitalization)
  Sender: FDA-Public Use
  Company Number: US-UCBSA-058501

PATIENT
  Age: 62 Year
  Sex: Female

DRUGS (1)
  1. CIMZIA [Suspect]
     Indication: RHEUMATOID ARTHRITIS
     Dosage: INDUCTION DOSE OF 400 MG ONCE EVERY 2 WEEKS WITH MAINTENANCE OF 400 MG ONCE EVERY 4 WEEKS
     Dates: start: 20120425

REACTIONS (2)
  - SEPSIS [None]
  - PNEUMONIA [None]
